FAERS Safety Report 25589288 (Version 1)
Quarter: 2025Q3

REPORT INFORMATION
  Report Type: Spontaneous
  Country: US (occurrence: US)
  Receive Date: 20250722
  Receipt Date: 20250722
  Transmission Date: 20251020
  Serious: Yes (Hospitalization, Other)
  Sender: SAMSUNG BIOEPIS
  Company Number: US-SAMSUNG BIOEPIS-SB-2025-24683

PATIENT
  Age: 72 Year
  Sex: Male

DRUGS (3)
  1. INFLIXIMAB [Suspect]
     Active Substance: INFLIXIMAB
     Indication: Pneumonitis
  2. INFLIXIMAB [Suspect]
     Active Substance: INFLIXIMAB
  3. METHYLPREDNISOLONE [Concomitant]
     Active Substance: METHYLPREDNISOLONE
     Indication: Pneumonitis
     Route: 042

REACTIONS (3)
  - Respiratory failure [Recovering/Resolving]
  - Pneumocystis jirovecii infection [Recovered/Resolved]
  - Off label use [Unknown]
